FAERS Safety Report 19640924 (Version 1)
Quarter: 2021Q3

REPORT INFORMATION
  Report Type: Spontaneous
  Country: US (occurrence: US)
  Receive Date: 20210730
  Receipt Date: 20210730
  Transmission Date: 20211014
  Serious: No
  Sender: FDA-Public Use
  Company Number: US-DENTSPLY PHARMACEUTICAL-2021SCDP000143

PATIENT

DRUGS (1)
  1. LIDOCAINE HYDROCHLORIDE AND EPINEPHRINE BITARTRATE [Suspect]
     Active Substance: EPINEPHRINE BITARTRATE\LIDOCAINE HYDROCHLORIDE
     Indication: LOCAL ANAESTHESIA
     Dosage: UNK 2% LIDOCAINE CONTAINING 12.5 MCG/ML EPINEPHRINE

REACTIONS (3)
  - Heart rate increased [Unknown]
  - Blood pressure systolic increased [Unknown]
  - Heart rate variability increased [Unknown]
